FAERS Safety Report 25077006 (Version 2)
Quarter: 2025Q1

REPORT INFORMATION
  Report Type: Spontaneous
  Country: JP (occurrence: JP)
  Receive Date: 20250314
  Receipt Date: 20250326
  Transmission Date: 20250409
  Serious: Yes (Hospitalization, Other)
  Sender: ABBVIE
  Company Number: JP-GSKNCCC-Case-02098317_AE-89446

PATIENT
  Age: 56 Year
  Sex: Male
  Weight: 60.5 kg

DRUGS (4)
  1. BOTOX [Suspect]
     Active Substance: ONABOTULINUMTOXINA
     Indication: Neurogenic bladder
     Route: 030
     Dates: start: 20241021, end: 20241021
  2. EDOXABAN TOSYLATE [Concomitant]
     Active Substance: EDOXABAN TOSYLATE
     Indication: Thrombosis prophylaxis
     Dosage: 30 MG, 1D
     Route: 048
  3. MIYA-BM [Concomitant]
     Active Substance: CLOSTRIDIUM BUTYRICUM SPORES STRAIN M-55
     Indication: Gastrointestinal disorder
     Dosage: 1 DF, TID
     Route: 048
  4. VIBEGRON [Concomitant]
     Active Substance: VIBEGRON
     Indication: Neurogenic bladder
     Dosage: 50 MG, 1D
     Route: 048

REACTIONS (3)
  - Autonomic dysreflexia [Recovering/Resolving]
  - Headache [Recovering/Resolving]
  - Cold sweat [Recovering/Resolving]

NARRATIVE: CASE EVENT DATE: 20241022
